FAERS Safety Report 17016029 (Version 1)
Quarter: 2019Q4

REPORT INFORMATION
  Report Type: Spontaneous
  Country: US (occurrence: US)
  Receive Date: 20191109
  Receipt Date: 20191109
  Transmission Date: 20200122
  Serious: No
  Sender: FDA-Public Use
  Company Number: None

PATIENT
  Age: 26 Year
  Sex: Female
  Weight: 60.75 kg

DRUGS (3)
  1. CIPROFLOXACIN. [Suspect]
     Active Substance: CIPROFLOXACIN
     Indication: URINARY TRACT INFECTION
     Dates: start: 20191107, end: 20191108
  2. KEPPRA [Concomitant]
     Active Substance: LEVETIRACETAM
  3. MIRENA [Concomitant]
     Active Substance: LEVONORGESTREL

REACTIONS (4)
  - Anxiety [None]
  - Paranoia [None]
  - Insomnia [None]
  - Nightmare [None]

NARRATIVE: CASE EVENT DATE: 20191107
